FAERS Safety Report 15275003 (Version 2)
Quarter: 2018Q3

REPORT INFORMATION
  Report Type: Spontaneous
  Country: US (occurrence: US)
  Receive Date: 20180814
  Receipt Date: 20180907
  Transmission Date: 20181010
  Serious: No
  Sender: FDA-Public Use
  Company Number: US-PFIZER INC-2018317617

PATIENT
  Age: 69 Year
  Sex: Female
  Weight: 41.73 kg

DRUGS (4)
  1. IBUPROFEN. [Interacting]
     Active Substance: IBUPROFEN
     Dosage: 200 MG, UNK
  2. EXCEDRIN [Interacting]
     Active Substance: ACETAMINOPHEN\ASPIRIN\CAFFEINE
     Indication: TOOTHACHE
     Dosage: UNK
  3. AMOXICILLIN. [Suspect]
     Active Substance: AMOXICILLIN
     Indication: TOOTH DISORDER
     Dosage: 500 MG, UNK
  4. XELJANZ [Suspect]
     Active Substance: TOFACITINIB CITRATE
     Dosage: 5 MG, UNK

REACTIONS (10)
  - Pain in extremity [Unknown]
  - Influenza like illness [Unknown]
  - Feeling abnormal [Unknown]
  - Speech disorder [Unknown]
  - Drug interaction [Unknown]
  - Nausea [Unknown]
  - Skin disorder [Unknown]
  - Chills [Unknown]
  - Pain [Unknown]
  - Pyrexia [Unknown]
